FAERS Safety Report 18992255 (Version 1)
Quarter: 2021Q1

REPORT INFORMATION
  Report Type: Spontaneous
  Country: US (occurrence: US)
  Receive Date: 20210310
  Receipt Date: 20210310
  Transmission Date: 20210420
  Serious: Yes (Other)
  Sender: FDA-Public Use
  Company Number: None

PATIENT
  Age: 48 Year
  Sex: Male
  Weight: 82.35 kg

DRUGS (1)
  1. TRULICITY [Suspect]
     Active Substance: DULAGLUTIDE
     Indication: TYPE 2 DIABETES MELLITUS
     Dosage: ?          OTHER FREQUENCY:ONCE;?
     Route: 058
     Dates: start: 20210302, end: 20210308

REACTIONS (8)
  - Muscle spasms [None]
  - Libido decreased [None]
  - Decreased appetite [None]
  - Nausea [None]
  - Vomiting [None]
  - Abdominal pain upper [None]
  - Dyspepsia [None]
  - Erectile dysfunction [None]

NARRATIVE: CASE EVENT DATE: 20210302
